FAERS Safety Report 4649776-9 (Version None)
Quarter: 2005Q2

REPORT INFORMATION
  Report Type: 
  Country: None (occurrence: None)
  Receive Date: 20050427
  Receipt Date: 20041115
  Transmission Date: 20051028
  Serious: Yes (Death, Hospitalization)
  Sender: FDA-Public Use
  Company Number: F01200403586

PATIENT
  Age: 49 Year
  Sex: Male

DRUGS (18)
  1. OXALIPLATIN - SOLUTION - UNIT DOSE : UNKNOWN [Suspect]
     Indication: COLORECTAL CANCER METASTATIC
     Dosage: INTRAVENOUS NOS
     Route: 042
  2. FLUOROURACIL [Suspect]
     Dosage: Q2W OR WEEKLY - INTRAVENOUS NOS
     Route: 042
  3. LEUCOVORIN CALCIUM [Suspect]
     Dosage: Q2W OR WEEKLY - INTRAVENOUS NOS
     Route: 042
  4. BEVACIZUMAB - SOLUTION - 5 MG/KG [Suspect]
     Dosage: 5 MG/KG Q2W - INTRAVENOUS NOS
     Route: 042
     Dates: start: 20040818, end: 20040818
  5. BEVACIZUMAB - SOLUTION - UNIT DOSE : UNKNOWN [Suspect]
     Dosage: INTRAVENOUS NOS
     Route: 042
     Dates: start: 20050314, end: 20050314
  6. CAPECITABINE - TABLET - UNIT DOSE : UNKNOWN [Suspect]
     Dosage: ORAL
     Route: 048
  7. IRINOTECAN HCL [Concomitant]
  8. PROMETHAZINE HCL [Concomitant]
  9. ATROPINE [Concomitant]
  10. DEXAMETHASONE [Concomitant]
  11. DIPHENHYDRAMINE HCL [Concomitant]
  12. CIMETIDINE [Concomitant]
  13. SOMATOSTATIN [Concomitant]
  14. ATENOLOL [Concomitant]
  15. OXYCODONE HCL [Concomitant]
  16. ACETAMINOPHEN / OXYCODONE HCL [Concomitant]
  17. WARFARIN SODIUM [Concomitant]
  18. LEVOFLOXACIN [Concomitant]

REACTIONS (9)
  - CATHETER RELATED COMPLICATION [None]
  - CEREBRAL HAEMORRHAGE [None]
  - CHILLS [None]
  - DRUG INTERACTION [None]
  - ILEITIS [None]
  - INTERNATIONAL NORMALISED RATIO DECREASED [None]
  - INTERNATIONAL NORMALISED RATIO INCREASED [None]
  - MALNUTRITION [None]
  - PYREXIA [None]
